FAERS Safety Report 9637958 (Version 1)
Quarter: 2013Q4

REPORT INFORMATION
  Report Type: Spontaneous
  Country: FI (occurrence: FI)
  Receive Date: 20131022
  Receipt Date: 20131022
  Transmission Date: 20140711
  Serious: Yes (Other)
  Sender: FDA-Public Use
  Company Number: FI-ABBVIE-13P-055-1152858-00

PATIENT
  Sex: Female

DRUGS (9)
  1. HUMIRA [Suspect]
     Indication: PRODUCT USED FOR UNKNOWN INDICATION
     Dates: start: 2008, end: 2008
  2. HUMIRA [Suspect]
     Dates: start: 2010
  3. HUMIRA [Suspect]
  4. METHOTREXATE [Suspect]
     Indication: PRODUCT USED FOR UNKNOWN INDICATION
     Dates: end: 2012
  5. METHOTREXATE [Suspect]
     Dosage: DECREASED
     Dates: start: 2012
  6. METHOTREXATE [Suspect]
     Dosage: INCREASED
  7. METHOTREXATE [Suspect]
  8. METHOTREXATE [Suspect]
  9. PAIN KILLERS [Concomitant]
     Indication: PRODUCT USED FOR UNKNOWN INDICATION

REACTIONS (12)
  - Device failure [Unknown]
  - Joint arthroplasty [Unknown]
  - Pain [Unknown]
  - Drug ineffective [Unknown]
  - Joint destruction [Unknown]
  - Fatigue [Unknown]
  - Rash [Recovered/Resolved]
  - Fatigue [Not Recovered/Not Resolved]
  - Blood test abnormal [Recovered/Resolved]
  - Nausea [Unknown]
  - Fatigue [Unknown]
  - Arthralgia [Unknown]
